FAERS Safety Report 7385140-X (Version None)
Quarter: 2011Q1

REPORT INFORMATION
  Report Type: 
  Country: None (occurrence: None)
  Receive Date: 20110330
  Receipt Date: 20110317
  Transmission Date: 20110831
  Serious: Yes (Hospitalization, Other)
  Sender: FDA-Public Use
  Company Number: JP-BRISTOL-MYERS SQUIBB COMPANY-15594138

PATIENT
  Age: 81 Year
  Sex: Female
  Weight: 36 kg

DRUGS (2)
  1. IRINOTECAN HCL [Suspect]
     Indication: COLON CANCER
     Dosage: STR FROM THE 3 RD COURSE OF ERBITUX INFUSION,02FEB2011-16MAR2011-ONG.
     Route: 041
     Dates: start: 20110202
  2. ERBITUX [Suspect]
     Indication: COLON CANCER
     Dosage: 8TH COURSE OF INF,08-08DEC10:400MG/M2,15DEC10-02FEB2011(49)DAYS:250MG/M2,RSTD 16FEB11-ONG:250MG/M2.
     Route: 042
     Dates: start: 20101208

REACTIONS (1)
  - ILEUS [None]
